FAERS Safety Report 8190297 (Version 6)
Quarter: 2013Q1

REPORT INFORMATION
  Report Type: Report from Study
  Country: JP (occurrence: JP)
  Receive Date: 20111019
  Receipt Date: 20130104
  Transmission Date: 20140127
  Serious: Yes (Hospitalization)
  Sender: FDA-Public Use
  Company Number: JP-GILEAD-2011-0045572

PATIENT
  Age: 2 Year
  Sex: Male

DRUGS (12)
  1. AMBRISENTAN [Suspect]
     Indication: PULMONARY HYPERTENSION
     Dosage: 0.6 MG, QD
     Route: 048
     Dates: start: 20110930, end: 20111003
  2. BERAPROST SODIUM [Concomitant]
     Indication: PULMONARY ARTERIAL HYPERTENSION
     Route: 048
     Dates: start: 20110610, end: 20111004
  3. MONILAC [Concomitant]
     Route: 048
  4. MONILAC [Concomitant]
     Route: 048
  5. INCREMIN                           /00875401/ [Concomitant]
     Route: 048
  6. RENIVACE [Concomitant]
     Indication: PULMONARY HYPERTENSION
     Dosage: UNK
     Route: 048
     Dates: start: 20110930
  7. RENIVACE [Concomitant]
     Dosage: 1.2 MG, QD
     Route: 048
     Dates: start: 20111014, end: 20111028
  8. RENIVACE [Concomitant]
     Dosage: 2.5 MG, QD
     Route: 048
     Dates: start: 20111029
  9. ALDACTONE A [Concomitant]
  10. ASPARA POTASSIUM [Concomitant]
  11. ENALAPRIL MALEATE [Concomitant]
  12. FRUSEMIDE                          /00032601/ [Concomitant]

REACTIONS (1)
  - Cardiac failure congestive [Not Recovered/Not Resolved]
